FAERS Safety Report 25275192 (Version 3)
Quarter: 2025Q3

REPORT INFORMATION
  Report Type: Report from Study
  Country: US (occurrence: US)
  Receive Date: 20250506
  Receipt Date: 20250921
  Transmission Date: 20251020
  Serious: No
  Sender: TRAVERE THERAPEUTICS
  Company Number: US-TRAVERE-2025TVT00553

PATIENT
  Age: 50 Year
  Sex: Female

DRUGS (14)
  1. FILSPARI [Suspect]
     Active Substance: SPARSENTAN
     Indication: IgA nephropathy
     Dosage: 1 TABLET, ONCE DAILY FOR DAYS 1-14
     Route: 048
     Dates: start: 20250327, end: 20250409
  2. FILSPARI [Suspect]
     Active Substance: SPARSENTAN
     Dosage: 2 TABLETS, ONCE DAILY ON DAYS 15-30
     Route: 048
     Dates: start: 20250410, end: 20250725
  3. FILSPARI [Suspect]
     Active Substance: SPARSENTAN
     Dosage: 2 TABLETS, ONCE DAILY ON DAYS 15-30
     Route: 048
     Dates: start: 20250727, end: 20250728
  4. FILSPARI [Suspect]
     Active Substance: SPARSENTAN
     Dosage: 2 TABLETS, ONCE DAILY ON DAYS 15-30
     Route: 048
     Dates: start: 20250730
  5. SYNTHROID [Concomitant]
     Active Substance: LEVOTHYROXINE SODIUM
  6. ESTRADIOL [Concomitant]
     Active Substance: ESTRADIOL
  7. ROSUVASTATIN [Concomitant]
     Active Substance: ROSUVASTATIN
  8. FUROSEMIDE [Concomitant]
     Active Substance: FUROSEMIDE
  9. POTASSIUM [Concomitant]
     Active Substance: POTASSIUM
  10. HYDROCORTISONE [Concomitant]
     Active Substance: HYDROCORTISONE
  11. Vitamin D3/K /125 MCG, K2 90 MCG/ [Concomitant]
  12. Women^s Probiotic [Concomitant]
  13. Vitamin B Super Complex with C [Concomitant]
  14. LIOTHYRONINE [Concomitant]
     Active Substance: LIOTHYRONINE

REACTIONS (3)
  - Peripheral swelling [None]
  - Joint swelling [Unknown]
  - Product dose omission issue [Unknown]
